FAERS Safety Report 7423152-8 (Version None)
Quarter: 2011Q2

REPORT INFORMATION
  Report Type: 
  Country: None (occurrence: None)
  Receive Date: 20110411
  Receipt Date: 20110328
  Transmission Date: 20111010
  Serious: Yes (Hospitalization)
  Sender: FDA-Public Use
  Company Number: DAV-AE-MTX-11-029

PATIENT
  Age: 27 Year
  Sex: Male

DRUGS (2)
  1. METHOTREXATE [Suspect]
     Indication: CROHN'S DISEASE
  2. IV INFLIXIMAB [Concomitant]

REACTIONS (3)
  - DIVERTICULUM [None]
  - ABSCESS [None]
  - BACTERIAL INFECTION [None]
